FAERS Safety Report 19216587 (Version 3)
Quarter: 2021Q3

REPORT INFORMATION
  Report Type: Other
  Country: US (occurrence: US)
  Receive Date: 20210505
  Receipt Date: 20210731
  Transmission Date: 20211014
  Serious: Yes (Hospitalization, Other)
  Sender: FDA-Public Use
  Company Number: US-ROCHE-2822721

PATIENT
  Sex: Male
  Weight: 102.51 kg

DRUGS (9)
  1. DIVALPROEX SODIUM. [Concomitant]
     Active Substance: DIVALPROEX SODIUM
     Route: 048
  2. PAROXETINE HCL [Concomitant]
     Active Substance: PAROXETINE HYDROCHLORIDE
     Route: 048
  3. GABAPENTIN. [Concomitant]
     Active Substance: GABAPENTIN
  4. BACLOFEN. [Concomitant]
     Active Substance: BACLOFEN
     Route: 048
  5. OCREVUS [Suspect]
     Active Substance: OCRELIZUMAB
     Indication: MULTIPLE SCLEROSIS
     Dosage: 300 MG ON DAY 1 AND 15, THEN 600 MG ONCE IN 6 MONTHS?DATE OF TREATMENT :10/DEC/2020
     Route: 065
  6. MELOXICAM. [Concomitant]
     Active Substance: MELOXICAM
     Route: 048
  7. LISINOPRIL AND HYDROCHLOROTHIAZIDE [Concomitant]
     Active Substance: HYDROCHLOROTHIAZIDE\LISINOPRIL
     Dosage: 10?12.5 MG
     Route: 048
  8. HYDROCODONE/ACETAMINOPHEN [Concomitant]
     Active Substance: ACETAMINOPHEN\HYDROCODONE
     Dosage: 3?325 MG
     Route: 048
  9. OMEPRAZOLE. [Concomitant]
     Active Substance: OMEPRAZOLE
     Route: 048

REACTIONS (6)
  - Appendicitis [Unknown]
  - Feeding disorder [Unknown]
  - Trigeminal neuralgia [Unknown]
  - Neuralgia [Unknown]
  - Multiple sclerosis [Unknown]
  - Muscle spasms [Unknown]
